FAERS Safety Report 16404807 (Version 1)
Quarter: 2019Q2

REPORT INFORMATION
  Report Type: Spontaneous
  Country: FR (occurrence: FR)
  Receive Date: 20190607
  Receipt Date: 20190607
  Transmission Date: 20190711
  Serious: Yes (Death)
  Sender: FDA-Public Use
  Company Number: PHHY2019FR131171

PATIENT
  Sex: Female

DRUGS (1)
  1. AMOXICILLIN. [Suspect]
     Active Substance: AMOXICILLIN
     Indication: ENDOCARDITIS
     Dosage: 200 MG, QD (MAXIMUM 12 G/DAY IN 6 INFUSIONS OF 2 G MAXIMUM)
     Route: 041

REACTIONS (3)
  - Acute kidney injury [Fatal]
  - Overdose [Fatal]
  - Crystalluria [Fatal]
